FAERS Safety Report 17657856 (Version 1)
Quarter: 2020Q2

REPORT INFORMATION
  Report Type: Spontaneous
  Country: US (occurrence: US)
  Receive Date: 20200411
  Receipt Date: 20200411
  Transmission Date: 20200713
  Serious: Yes (Other)
  Sender: FDA-Public Use
  Company Number: US-CADILA HEALTHCARE LIMITED-US-ZYDUS-049008

PATIENT

DRUGS (1)
  1. MISOPROSTOL 200 MICROGRAM TABLET [Suspect]
     Active Substance: MISOPROSTOL
     Indication: ABORTION INCOMPLETE
     Dosage: 200 MICROGRAM
     Route: 048

REACTIONS (1)
  - Haemorrhage [Unknown]
